FAERS Safety Report 6989606 (Version 1)
Quarter: 2020Q3

REPORT INFORMATION
  Report Type: Spontaneous
  Country: US (occurrence: None)
  Receive Date: 20090501
  Receipt Date: 20090501
  Transmission Date: 20201104
  Serious: Yes (Other)
  Sender: FDA-Public Use
  Company Number: None

PATIENT
  Age: 0 Year
  Sex: Male
  Weight: 6 kg

DRUGS (1)
  1. FERROUS SULFATE. [Suspect]
     Active Substance: FERROUS SULFATE

REACTIONS (2)
  - Intercepted medication error [None]
  - Product label issue [None]

NARRATIVE: CASE EVENT DATE: 20090331
